FAERS Safety Report 14976474 (Version 1)
Quarter: 2018Q2

REPORT INFORMATION
  Report Type: Spontaneous
  Country: US (occurrence: US)
  Receive Date: 20180605
  Receipt Date: 20180605
  Transmission Date: 20180711
  Serious: No
  Sender: FDA-Public Use
  Company Number: US-GALDERMA-US18007747

PATIENT
  Age: 14 Year
  Sex: Female

DRUGS (32)
  1. PROACTIV MD ADAPALENE ACNE TREATMENT [Suspect]
     Active Substance: ADAPALENE
     Indication: RASH PAPULAR
  2. PROACTIV MD DEEP CLEANSING FACE WASH [Concomitant]
     Active Substance: COSMETICS
     Indication: ACNE
     Route: 061
     Dates: start: 20170831, end: 20171227
  3. PROACTIV OIL FREE MOISTURE SPF 15 [Concomitant]
     Indication: RASH PAPULAR
  4. PROACTIV EMERGENCY BLEMISH RELIEF [Concomitant]
     Active Substance: BENZOYL PEROXIDE
     Indication: ACNE
     Route: 061
     Dates: start: 20170831, end: 20171227
  5. PROACTIV EMERGENCY BLEMISH RELIEF [Concomitant]
     Active Substance: BENZOYL PEROXIDE
     Indication: RASH PAPULAR
  6. PROACTIV SOLUTION DAILY PROTECTION PLUS SUNSCREEN SPF 30 [Suspect]
     Active Substance: AVOBENZONE\HOMOSALATE\OCTINOXATE\OCTISALATE\OXYBENZONE
     Indication: ACNE
     Route: 061
     Dates: start: 20170831, end: 20171227
  7. PROACTIV DEEP CLEANSING WASH [Concomitant]
     Active Substance: SALICYLIC ACID
     Indication: RASH PAPULAR
  8. PROACTIV MD ADAPALENE ACNE TREATMENT [Suspect]
     Active Substance: ADAPALENE
     Indication: ACNE
     Dosage: 0.1%
     Route: 061
     Dates: start: 20170831, end: 20171227
  9. PROACTIV MD ADAPALENE ACNE TREATMENT [Suspect]
     Active Substance: ADAPALENE
     Indication: PAIN OF SKIN
  10. PROACTIV MD DEEP CLEANSING FACE WASH [Concomitant]
     Active Substance: COSMETICS
     Indication: ERYTHEMA
  11. PROACTIV MD DEEP CLEANSING FACE WASH [Concomitant]
     Active Substance: COSMETICS
     Indication: RASH PAPULAR
  12. PROACTIV MD BALANCING TONER [Concomitant]
     Active Substance: COSMETICS
     Indication: ACNE
     Route: 061
     Dates: start: 20170831, end: 20171227
  13. PROACTIV MD BALANCING TONER [Concomitant]
     Active Substance: COSMETICS
     Indication: RASH PAPULAR
  14. PROACTIV DEEP CLEANSING WASH [Concomitant]
     Active Substance: SALICYLIC ACID
     Indication: PAIN OF SKIN
  15. PROACTIV OIL FREE MOISTURE SPF 15 [Concomitant]
     Indication: ERYTHEMA
  16. PROACTIV MD DEEP CLEANSING FACE WASH [Concomitant]
     Active Substance: COSMETICS
     Indication: PAIN OF SKIN
  17. PROACTIV MD BALANCING TONER [Concomitant]
     Active Substance: COSMETICS
     Indication: PAIN OF SKIN
  18. PROACTIV EMERGENCY BLEMISH RELIEF [Concomitant]
     Active Substance: BENZOYL PEROXIDE
     Indication: PAIN OF SKIN
  19. PROACTIV SOLUTION BLACKHEAD DISSOLVING [Concomitant]
     Active Substance: SALICYLIC ACID
     Indication: ERYTHEMA
  20. PROACTIV DEEP CLEANSING WASH [Concomitant]
     Active Substance: SALICYLIC ACID
     Indication: ACNE
     Route: 061
     Dates: start: 20170831, end: 20171227
  21. PROACTIV SOLUTION BLACKHEAD DISSOLVING [Concomitant]
     Active Substance: SALICYLIC ACID
     Indication: PAIN OF SKIN
  22. PROACTIV SOLUTION BLACKHEAD DISSOLVING [Concomitant]
     Active Substance: SALICYLIC ACID
     Indication: RASH PAPULAR
  23. PROACTIV SOLUTION DAILY PROTECTION PLUS SUNSCREEN SPF 30 [Suspect]
     Active Substance: AVOBENZONE\HOMOSALATE\OCTINOXATE\OCTISALATE\OXYBENZONE
     Indication: PAIN OF SKIN
  24. PROACTIV SOLUTION DAILY PROTECTION PLUS SUNSCREEN SPF 30 [Suspect]
     Active Substance: AVOBENZONE\HOMOSALATE\OCTINOXATE\OCTISALATE\OXYBENZONE
     Indication: ERYTHEMA
  25. PROACTIV SOLUTION DAILY PROTECTION PLUS SUNSCREEN SPF 30 [Suspect]
     Active Substance: AVOBENZONE\HOMOSALATE\OCTINOXATE\OCTISALATE\OXYBENZONE
     Indication: RASH PAPULAR
  26. PROACTIV MD BALANCING TONER [Concomitant]
     Active Substance: COSMETICS
     Indication: ERYTHEMA
  27. PROACTIV OIL FREE MOISTURE SPF 15 [Concomitant]
     Indication: ACNE
     Route: 061
     Dates: start: 20170831, end: 20171227
  28. PROACTIV EMERGENCY BLEMISH RELIEF [Concomitant]
     Active Substance: BENZOYL PEROXIDE
     Indication: ERYTHEMA
  29. PROACTIV MD ADAPALENE ACNE TREATMENT [Suspect]
     Active Substance: ADAPALENE
     Indication: ERYTHEMA
  30. PROACTIV OIL FREE MOISTURE SPF 15 [Concomitant]
     Indication: PAIN OF SKIN
  31. PROACTIV SOLUTION BLACKHEAD DISSOLVING [Concomitant]
     Active Substance: SALICYLIC ACID
     Indication: ACNE
     Route: 061
     Dates: start: 20170831, end: 20171227
  32. PROACTIV DEEP CLEANSING WASH [Concomitant]
     Active Substance: SALICYLIC ACID
     Indication: ERYTHEMA

REACTIONS (5)
  - Inappropriate schedule of drug administration [Recovered/Resolved]
  - Underdose [Recovered/Resolved]
  - Product use in unapproved indication [Recovered/Resolved]
  - Skin burning sensation [Recovered/Resolved]
  - Dry skin [Recovered/Resolved]

NARRATIVE: CASE EVENT DATE: 20170831
